FAERS Safety Report 8451937-8 (Version None)
Quarter: 2012Q2

REPORT INFORMATION
  Report Type: 
  Country: None (occurrence: None)
  Receive Date: 20120620
  Receipt Date: 20120326
  Transmission Date: 20120825
  Serious: No
  Sender: FDA-Public Use
  Company Number: US-VERTEX PHARMACEUTICALS INC.-AE-2012-004314

PATIENT
  Sex: Female
  Weight: 61.2 kg

DRUGS (3)
  1. RIBASPHERE [Concomitant]
     Indication: HEPATITIS C
  2. INCIVEK [Suspect]
     Indication: HEPATITIS C
     Route: 048
     Dates: end: 20120323
  3. PEGASYS [Concomitant]
     Indication: HEPATITIS C

REACTIONS (1)
  - RASH [None]
